FAERS Safety Report 17210858 (Version 7)
Quarter: 2020Q4

REPORT INFORMATION
  Report Type: Spontaneous
  Country: CA (occurrence: CA)
  Receive Date: 20191227
  Receipt Date: 20201209
  Transmission Date: 20210113
  Serious: Yes (Other)
  Sender: FDA-Public Use
  Company Number: CA-CELLTRION INC.-2019CA027617

PATIENT

DRUGS (7)
  1. INFLECTRA [Suspect]
     Active Substance: INFLIXIMAB-DYYB
     Dosage: 700 MG EVERY 6 WEEKS
     Route: 042
     Dates: start: 20200902
  2. INFLECTRA [Suspect]
     Active Substance: INFLIXIMAB-DYYB
     Dosage: 700 MG EVERY 6 WEEKS
     Route: 042
     Dates: start: 20201020
  3. INFLECTRA [Suspect]
     Active Substance: INFLIXIMAB-DYYB
     Dosage: 700 MG EVERY 6 WEEKS
     Route: 042
     Dates: start: 20200120, end: 2020
  4. INFLECTRA [Suspect]
     Active Substance: INFLIXIMAB-DYYB
     Dosage: 700 MG EVERY 6 WEEKS
     Route: 042
     Dates: start: 20200309
  5. INFLECTRA [Suspect]
     Active Substance: INFLIXIMAB-DYYB
     Indication: CROHN^S DISEASE
     Dosage: 700 MG EVERY 6 WEEKS
     Route: 042
     Dates: start: 20191211
  6. INFLECTRA [Suspect]
     Active Substance: INFLIXIMAB-DYYB
     Dosage: 700 MG EVERY 6 WEEKS
     Route: 042
     Dates: start: 20200309
  7. INFLECTRA [Suspect]
     Active Substance: INFLIXIMAB-DYYB
     Dosage: 700 MG EVERY 6 WEEKS
     Route: 042
     Dates: start: 20201201

REACTIONS (22)
  - Nasopharyngitis [Unknown]
  - Chills [Unknown]
  - Gastrointestinal disorder [Unknown]
  - Rectal haemorrhage [Unknown]
  - Arthralgia [Unknown]
  - Intentional product use issue [Unknown]
  - Diarrhoea [Unknown]
  - Pain in extremity [Unknown]
  - Condition aggravated [Unknown]
  - Dyspepsia [Unknown]
  - Dysphagia [Unknown]
  - Oropharyngeal pain [Unknown]
  - Haematemesis [Unknown]
  - Blood pressure fluctuation [Not Recovered/Not Resolved]
  - Eating disorder [Unknown]
  - Vomiting [Unknown]
  - Oesophagitis [Unknown]
  - Product use issue [Unknown]
  - Headache [Recovering/Resolving]
  - Abdominal discomfort [Unknown]
  - Constipation [Unknown]
  - Off label use [Unknown]

NARRATIVE: CASE EVENT DATE: 20191211
